FAERS Safety Report 13047614 (Version 1)
Quarter: 2016Q4

REPORT INFORMATION
  Report Type: Spontaneous
  Country: IN (occurrence: IN)
  Receive Date: 20161220
  Receipt Date: 20161220
  Transmission Date: 20170207
  Serious: Yes (Other)
  Sender: FDA-Public Use
  Company Number: IN-INGENUS PHARMACEUTICALS NJ, LLC-ING201612-000154

PATIENT
  Age: 28 Year
  Sex: Male

DRUGS (2)
  1. CYPROHEPTADINE. [Suspect]
     Active Substance: CYPROHEPTADINE
  2. CYPROHEPTADINE. [Suspect]
     Active Substance: CYPROHEPTADINE
     Indication: SEROTONIN SYNDROME

REACTIONS (2)
  - Drug dependence [Not Recovered/Not Resolved]
  - Product use issue [Unknown]
